FAERS Safety Report 18594219 (Version 5)
Quarter: 2021Q2

REPORT INFORMATION
  Report Type: Spontaneous
  Country: US (occurrence: US)
  Receive Date: 20201209
  Receipt Date: 20210506
  Transmission Date: 20210717
  Serious: No
  Sender: FDA-Public Use
  Company Number: US-PFIZER INC-2020477969

PATIENT
  Age: 1 Year
  Sex: Male
  Weight: 7.54 kg

DRUGS (3)
  1. GENOTROPIN [Suspect]
     Active Substance: SOMATROPIN
     Indication: PREMATURE BABY
  2. GENOTROPIN [Suspect]
     Active Substance: SOMATROPIN
     Indication: LOW BIRTH WEIGHT BABY
  3. GENOTROPIN [Suspect]
     Active Substance: SOMATROPIN
     Indication: CYTOGENETIC ABNORMALITY
     Dosage: 0.2 MG, DAILY
     Route: 058
     Dates: start: 20200526, end: 20201202

REACTIONS (2)
  - Drug dose omission by device [Unknown]
  - Device leakage [Unknown]
